FAERS Safety Report 5586496-0 (Version None)
Quarter: 2008Q1

REPORT INFORMATION
  Report Type: 
  Country: None (occurrence: None)
  Receive Date: 20080110
  Receipt Date: 20080102
  Transmission Date: 20080703
  Serious: Yes (Hospitalization)
  Sender: FDA-Public Use
  Company Number: US-KINGPHARMUSA00001-K200800002

PATIENT

DRUGS (4)
  1. SONATA [Suspect]
     Indication: INTENTIONAL OVERDOSE
     Dosage: 14 CAPSULES
     Route: 048
     Dates: start: 20071226, end: 20071226
  2. LEVOXYL [Suspect]
     Indication: INTENTIONAL OVERDOSE
     Dosage: (15 TABLETS) OVERDOSE AMOUNT 1500 MCG
     Route: 048
     Dates: start: 20071226, end: 20071226
  3. DIMEDROLUM [Suspect]
     Indication: INTENTIONAL OVERDOSE
     Dosage: (10 TABLETS) OVERDOSE AMOUNT 500 MG
     Route: 048
     Dates: start: 20071226, end: 20071226
  4. IBUPROFEN [Suspect]
     Indication: INTENTIONAL OVERDOSE
     Dosage: (20 TABLETS) OVERDOSE AMOUNT 12,000 MG
     Route: 048
     Dates: start: 20071226, end: 20071226

REACTIONS (4)
  - INTENTIONAL OVERDOSE [None]
  - SOMNOLENCE [None]
  - SUICIDE ATTEMPT [None]
  - TACHYCARDIA [None]
